FAERS Safety Report 7997894-X (Version None)
Quarter: 2011Q4

REPORT INFORMATION
  Report Type: 
  Country: None (occurrence: None)
  Receive Date: 20111221
  Receipt Date: 20110329
  Transmission Date: 20120403
  Serious: No
  Sender: FDA-Public Use
  Company Number: US-PFIZER INC-K201100354

PATIENT
  Age: 68 Year
  Sex: Female
  Weight: 107.94 kg

DRUGS (6)
  1. HYDROCHLOROTHIAZIDE [Concomitant]
     Indication: HYPERTENSION
     Dosage: UNK
     Route: 048
  2. CORGARD [Suspect]
     Indication: HYPERTENSION
     Dosage: 20 MG, 2X/DAY
     Route: 048
     Dates: start: 19710101
  3. CORGARD [Suspect]
     Indication: ANGINA PECTORIS
  4. DIOVAN [Concomitant]
     Indication: HYPERTENSION
     Dosage: UNK
     Route: 048
  5. SYNTHROID [Concomitant]
     Indication: THYROID DISORDER
     Dosage: UNK
     Route: 048
  6. AMARYL [Concomitant]
     Indication: DIABETES MELLITUS
     Dosage: 1 MG, UNK
     Route: 048

REACTIONS (7)
  - RASH [None]
  - LARYNGITIS [None]
  - BRONCHITIS [None]
  - HERPES ZOSTER [None]
  - SINUSITIS [None]
  - NASOPHARYNGITIS [None]
  - INFLUENZA [None]
